FAERS Safety Report 7766231-8 (Version None)
Quarter: 2011Q3

REPORT INFORMATION
  Report Type: 
  Country: None (occurrence: None)
  Receive Date: 20110921
  Receipt Date: 20110916
  Transmission Date: 20111222
  Serious: Yes (Other)
  Sender: FDA-Public Use
  Company Number: DE-AMGEN-DEUSP2011047777

PATIENT
  Sex: Male

DRUGS (2)
  1. XGEVA [Suspect]
     Dosage: UNK
     Dates: start: 20110915
  2. XGEVA [Suspect]
     Indication: PRODUCT USED FOR UNKNOWN INDICATION
     Dosage: UNK
     Dates: start: 20110818

REACTIONS (3)
  - EYE DISORDER [None]
  - VISUAL IMPAIRMENT [None]
  - VISION BLURRED [None]
